FAERS Safety Report 19031458 (Version 4)
Quarter: 2021Q2

REPORT INFORMATION
  Report Type: Spontaneous
  Country: BR (occurrence: BR)
  Receive Date: 20210319
  Receipt Date: 20210618
  Transmission Date: 20210717
  Serious: Yes (Death, Hospitalization, Other)
  Sender: FDA-Public Use
  Company Number: BR-ROCHE-2793692

PATIENT
  Age: 76 Year
  Sex: Female
  Weight: 57 kg

DRUGS (5)
  1. TAZOCIN [Concomitant]
     Active Substance: PIPERACILLIN SODIUM\TAZOBACTAM SODIUM
     Dosage: EVERY 6 HOURS
     Route: 042
  2. DEXAMETHASONE. [Concomitant]
     Active Substance: DEXAMETHASONE
     Route: 042
  3. ROSUVASTATIN. [Concomitant]
     Active Substance: ROSUVASTATIN
  4. ACTEMRA [Suspect]
     Active Substance: TOCILIZUMAB
     Indication: COVID-19
     Dosage: SINGLE?DOSE
     Route: 042
     Dates: start: 20210224, end: 20210224
  5. AMIODARONE [Concomitant]
     Active Substance: AMIODARONE

REACTIONS (5)
  - Off label use [Unknown]
  - Cardiac arrest [Fatal]
  - Dyspnoea [Unknown]
  - Transaminases increased [Recovered/Resolved]
  - Respiratory gas exchange disorder [Unknown]

NARRATIVE: CASE EVENT DATE: 20210302
